FAERS Safety Report 8162364-5 (Version None)
Quarter: 2012Q1

REPORT INFORMATION
  Report Type: 
  Country: None (occurrence: None)
  Receive Date: 20120221
  Receipt Date: 20120208
  Transmission Date: 20120608
  Serious: Yes (Other)
  Sender: FDA-Public Use
  Company Number: US-1190433

PATIENT
  Age: 71 Year
  Sex: Male

DRUGS (9)
  1. EPINEPHRINE [Concomitant]
  2. BSS PLUS [Suspect]
     Indication: INTRAOCULAR LENS IMPLANT
     Dosage: (INTRAOCULAR)
     Route: 031
     Dates: start: 20120117, end: 20120117
  3. DEXAMETHASONE [Concomitant]
  4. TIMOPTIC [Concomitant]
  5. BSS [Suspect]
     Indication: INTRAOCULAR LENS IMPLANT
     Route: 031
     Dates: start: 20120117, end: 20120117
  6. LIDOCAINE [Concomitant]
  7. MIOSTAT [Suspect]
     Indication: INTRAOCULAR LENS IMPLANT
     Route: 031
     Dates: start: 20120117, end: 20120117
  8. IOPIDINE [Concomitant]
  9. CEFAZOLIN [Concomitant]

REACTIONS (2)
  - TOXIC ANTERIOR SEGMENT SYNDROME [None]
  - MEDICATION ERROR [None]
